FAERS Safety Report 14003183 (Version 1)
Quarter: 2017Q3

REPORT INFORMATION
  Report Type: Spontaneous
  Country: US (occurrence: US)
  Receive Date: 20170922
  Receipt Date: 20170922
  Transmission Date: 20171128
  Serious: No
  Sender: FDA-Public Use
  Company Number: US-MAYNE PHARMA-2016MYN000664

PATIENT

DRUGS (1)
  1. CLONIDINE. [Suspect]
     Active Substance: CLONIDINE
     Indication: HYPERTENSION
     Dosage: 0.1 MG, QWEEK
     Route: 062
     Dates: start: 201606

REACTIONS (8)
  - Blood pressure increased [Recovered/Resolved]
  - Abdominal discomfort [Recovered/Resolved]
  - Dizziness [Recovered/Resolved]
  - Headache [Recovered/Resolved]
  - Heart rate increased [Recovered/Resolved]
  - Insomnia [Recovered/Resolved]
  - Product quality issue [Unknown]
  - Anxiety [Recovered/Resolved]

NARRATIVE: CASE EVENT DATE: 20160922
